FAERS Safety Report 6051662-7 (Version None)
Quarter: 2009Q1

REPORT INFORMATION
  Report Type: 
  Country: None (occurrence: None)
  Receive Date: 20090126
  Receipt Date: 20090123
  Transmission Date: 20090719
  Serious: Yes (Other)
  Sender: FDA-Public Use
  Company Number: US-RB-008643-09

PATIENT
  Age: 56 Year
  Sex: Female

DRUGS (3)
  1. SUBOXONE [Suspect]
     Indication: PAIN
     Dosage: CALLER STATES SHE TAKES VARYING DOSES DAILY.
     Route: 060
     Dates: start: 20090101
  2. ATIVAN [Concomitant]
     Indication: DRUG USE FOR UNKNOWN INDICATION
     Dosage: UNKNOWN DOSE
     Route: 048
  3. VALIUM [Concomitant]
     Indication: DRUG USE FOR UNKNOWN INDICATION

REACTIONS (5)
  - DYSPNOEA [None]
  - JOINT INJURY [None]
  - LOSS OF CONSCIOUSNESS [None]
  - PRURITUS [None]
  - VISUAL ACUITY REDUCED [None]
